FAERS Safety Report 21418841 (Version 2)
Quarter: 2023Q2

REPORT INFORMATION
  Report Type: Report from Study
  Country: ES (occurrence: ES)
  Receive Date: 20221006
  Receipt Date: 20230630
  Transmission Date: 20230722
  Serious: Yes (Other)
  Sender: FDA-Public Use
  Company Number: None

PATIENT
  Age: 63 Year
  Sex: Female

DRUGS (1)
  1. XELJANZ [Suspect]
     Active Substance: TOFACITINIB CITRATE
     Indication: Rheumatoid arthritis
     Dosage: 10 MG, 1X/DAY
     Route: 048
     Dates: start: 20180709, end: 20220425

REACTIONS (3)
  - Punctate keratitis [Recovered/Resolved]
  - Keratitis viral [Recovered/Resolved]
  - Herpes ophthalmic [Recovered/Resolved]

NARRATIVE: CASE EVENT DATE: 20210508
